FAERS Safety Report 14008475 (Version 40)
Quarter: 2024Q1

REPORT INFORMATION
  Report Type: Spontaneous
  Country: PT (occurrence: PT)
  Receive Date: 20170925
  Receipt Date: 20240110
  Transmission Date: 20240410
  Serious: Yes (Life-Threatening, Other)
  Sender: FDA-Public Use
  Company Number: PT-PFIZER INC-2017405189

PATIENT

DRUGS (40)
  1. ACETAMINOPHEN [Suspect]
     Active Substance: ACETAMINOPHEN
     Indication: Asthma
     Dosage: UNKNOWN DOSE
     Route: 065
  2. ACETAMINOPHEN [Suspect]
     Active Substance: ACETAMINOPHEN
     Indication: Urticaria chronic
     Dosage: UNK
     Route: 065
  3. IBUPROFEN [Suspect]
     Active Substance: IBUPROFEN
     Indication: Urticaria chronic
     Dosage: UNKNOWN DOSE
     Route: 065
  4. IBUPROFEN [Suspect]
     Active Substance: IBUPROFEN
     Indication: Asthma
  5. HYDROCORTISONE [Suspect]
     Active Substance: HYDROCORTISONE
     Indication: Urticaria chronic
     Dosage: UNK UNKNOWN DOSE
     Route: 062
  6. HYDROCORTISONE [Suspect]
     Active Substance: HYDROCORTISONE
     Indication: Asthma
     Dosage: UNK UNKNOWN DOSE
     Route: 065
  7. ZYRTEC [Suspect]
     Active Substance: CETIRIZINE HYDROCHLORIDE
     Indication: Asthma
     Dosage: UNK UNKNOWN DOSE
     Route: 065
  8. ZYRTEC [Suspect]
     Active Substance: CETIRIZINE HYDROCHLORIDE
     Indication: Urticaria chronic
     Dosage: UNK
     Route: 065
  9. ZYRTEC [Suspect]
     Active Substance: CETIRIZINE HYDROCHLORIDE
     Indication: Off label use
  10. DESLORATADINE [Suspect]
     Active Substance: DESLORATADINE
     Indication: Urticaria chronic
     Dosage: UNK  DPT
     Route: 048
  11. DESLORATADINE [Suspect]
     Active Substance: DESLORATADINE
     Indication: Asthma
  12. DESLORATADINE [Suspect]
     Active Substance: DESLORATADINE
     Indication: Drug provocation test
  13. LORATADINE [Suspect]
     Active Substance: LORATADINE
     Indication: Urticaria chronic
     Dosage: 150 MG
     Route: 065
  14. LORATADINE [Suspect]
     Active Substance: LORATADINE
     Indication: Asthma
     Dosage: UNK UNKNOWN DOSE
     Route: 062
  15. METHYLPREDNISOLONE [Suspect]
     Active Substance: METHYLPREDNISOLONE
     Indication: Urticaria chronic
     Dosage: UNK UNKNOWN DOSE
     Route: 062
  16. METHYLPREDNISOLONE [Suspect]
     Active Substance: METHYLPREDNISOLONE
     Indication: Asthma
     Dosage: UNK DOSAGE FORM: UNSPECIFIED
     Route: 065
  17. DEFLAZACORT [Suspect]
     Active Substance: DEFLAZACORT
     Indication: Asthma
     Dosage: UNK UNKNOWN DOSE, DOSAGE FORM : DPT
     Route: 062
  18. DEFLAZACORT [Suspect]
     Active Substance: DEFLAZACORT
     Indication: Urticaria chronic
     Dosage: UNK DOSAGE FORM: UNSPECIFIED
     Route: 065
  19. DEFLAZACORT [Suspect]
     Active Substance: DEFLAZACORT
     Dosage: UNK DOSAGE FORM: UNSPECIFIED
     Route: 065
  20. DEFLAZACORT [Suspect]
     Active Substance: DEFLAZACORT
     Indication: Asthma
     Dosage: UNK
     Route: 048
  21. DEFLAZACORT [Suspect]
     Active Substance: DEFLAZACORT
     Indication: Urticaria chronic
  22. FLURBIPROFEN [Suspect]
     Active Substance: FLURBIPROFEN
     Indication: Urticaria chronic
     Dosage: UNKNOWN DOSE
     Route: 065
  23. FLURBIPROFEN [Suspect]
     Active Substance: FLURBIPROFEN
     Indication: Asthma
  24. DEXAMETHASONE SODIUM PHOSPHATE [Suspect]
     Active Substance: DEXAMETHASONE PHOSPHATE\DEXAMETHASONE SODIUM PHOSPHATE
     Indication: Urticaria chronic
     Dosage: UNKNOWN DOSE
     Route: 065
  25. DEXAMETHASONE SODIUM PHOSPHATE [Suspect]
     Active Substance: DEXAMETHASONE PHOSPHATE\DEXAMETHASONE SODIUM PHOSPHATE
     Indication: Asthma
  26. EBASTINE [Suspect]
     Active Substance: EBASTINE
     Indication: Urticaria chronic
     Dosage: UNK
  27. EBASTINE [Suspect]
     Active Substance: EBASTINE
     Indication: Asthma
     Dosage: UNK DOSAGE FORM: UNSPECIFIED
     Route: 065
  28. EBASTINE [Suspect]
     Active Substance: EBASTINE
     Dosage: UNK DOSAGE FORM: UNSPECIFIED
     Route: 065
  29. CLEMASTINE FUMARATE [Suspect]
     Active Substance: CLEMASTINE FUMARATE
     Indication: Asthma
     Dosage: UNK
     Route: 065
  30. CLEMASTINE FUMARATE [Suspect]
     Active Substance: CLEMASTINE FUMARATE
     Indication: Urticaria chronic
  31. MONTELUKAST SODIUM [Suspect]
     Active Substance: MONTELUKAST SODIUM
     Indication: Urticaria chronic
     Dosage: UNK UNKNOWN DOSE
     Route: 048
  32. MONTELUKAST SODIUM [Suspect]
     Active Substance: MONTELUKAST SODIUM
     Indication: Asthma
     Dosage: UNK
     Route: 048
  33. MONTELUKAST SODIUM [Suspect]
     Active Substance: MONTELUKAST SODIUM
     Dosage: UNK
     Route: 065
  34. LORATADINE [Suspect]
     Active Substance: LORATADINE
     Indication: Urticaria chronic
     Dosage: UNK UNKNOWN DOSE
     Route: 048
  35. LORATADINE [Suspect]
     Active Substance: LORATADINE
     Indication: Asthma
  36. HYDROXYZINE [Suspect]
     Active Substance: HYDROXYZINE HYDROCHLORIDE
     Indication: Asthma
     Dosage: UNK
     Route: 065
  37. HYDROXYZINE [Suspect]
     Active Substance: HYDROXYZINE HYDROCHLORIDE
     Indication: Urticaria chronic
     Dosage: UNK
     Route: 065
  38. OMALIZUMAB [Suspect]
     Active Substance: OMALIZUMAB
     Indication: Asthma
     Dosage: 300 MG
     Route: 065
  39. OMALIZUMAB [Suspect]
     Active Substance: OMALIZUMAB
     Indication: Angioedema
     Dosage: 150 MG
     Route: 065
  40. OMALIZUMAB [Suspect]
     Active Substance: OMALIZUMAB
     Indication: Urticaria chronic

REACTIONS (10)
  - Syncope [Unknown]
  - Angioedema [Recovering/Resolving]
  - Drug reaction with eosinophilia and systemic symptoms [Recovered/Resolved]
  - Urticaria [Recovering/Resolving]
  - Allergy test positive [Recovering/Resolving]
  - Off label use [Unknown]
  - Maternal exposure during pregnancy [Unknown]
  - Exposure during pregnancy [Unknown]
  - Maternal exposure before pregnancy [Unknown]
  - Product use in unapproved indication [Unknown]
